FAERS Safety Report 7517143-6 (Version None)
Quarter: 2011Q2

REPORT INFORMATION
  Report Type: 
  Country: None (occurrence: None)
  Receive Date: 20110601
  Receipt Date: 20110523
  Transmission Date: 20111010
  Serious: Yes (Death, Other)
  Sender: FDA-Public Use
  Company Number: AU-PFIZER INC-2011117005

PATIENT
  Age: 32 Year
  Sex: Male

DRUGS (5)
  1. ALPRAZOLAM [Interacting]
  2. METHAMPHETAMINE HYDROCHLORIDE [Suspect]
  3. DIAZEPAM [Suspect]
  4. METHYLENEDIOXYMETHAMPHETAMINE [Interacting]
     Dosage: UNK
  5. METHADONE HCL [Interacting]
     Dosage: UNK

REACTIONS (4)
  - INJURY [None]
  - DRUG INTERACTION [None]
  - MULTIPLE INJURIES [None]
  - HEPATITIS C [None]
